FAERS Safety Report 10061478 (Version 2)
Quarter: 2014Q2

REPORT INFORMATION
  Report Type: Spontaneous
  Country: US (occurrence: US)
  Receive Date: 20140407
  Receipt Date: 20140407
  Transmission Date: 20141212
  Serious: Yes (Death, Life-Threatening, Hospitalization)
  Sender: FDA-Public Use
  Company Number: US-BAYER-2014-044157

PATIENT
  Age: 85 Year
  Sex: Female
  Weight: 63 kg

DRUGS (1)
  1. GADAVIST [Suspect]
     Indication: NUCLEAR MAGNETIC RESONANCE IMAGING
     Dosage: 1 MMOL/ML, ONCE
     Dates: start: 20131022, end: 20131022

REACTIONS (3)
  - Dyspnoea [None]
  - Cough [None]
  - Death [Fatal]
